FAERS Safety Report 6398154-3 (Version None)
Quarter: 2009Q4

REPORT INFORMATION
  Report Type: 
  Country: None (occurrence: None)
  Receive Date: 20091013
  Receipt Date: 20091005
  Transmission Date: 20100525
  Serious: Yes (Other)
  Sender: FDA-Public Use
  Company Number: CA-BRISTOL-MYERS SQUIBB COMPANY-14806632

PATIENT
  Age: 52 Year
  Sex: Female

DRUGS (1)
  1. TRIAMCINOLONE ACETONIDE [Suspect]
     Indication: SCLERITIS
     Dosage: FORM=INJEC. GIVEN SUBRETINALLY INSTEAD OF SUBTENON.
     Route: 047

REACTIONS (2)
  - DRUG ADMINISTRATION ERROR [None]
  - RETINAL DETACHMENT [None]
